FAERS Safety Report 24720722 (Version 2)
Quarter: 2024Q4

REPORT INFORMATION
  Report Type: Spontaneous
  Country: DK (occurrence: DK)
  Receive Date: 20241211
  Receipt Date: 20241226
  Transmission Date: 20250115
  Serious: Yes (Hospitalization)
  Sender: ABBVIE
  Company Number: DK-ROCHE-10000145297

PATIENT
  Age: 79 Year
  Sex: Male
  Weight: 74 kg

DRUGS (6)
  1. VENETOCLAX [Suspect]
     Active Substance: VENETOCLAX
     Indication: Chronic lymphocytic leukaemia
     Dosage: START DATE OF MOST RECENT DOSE: 06-MAR-2024 (100 MG), 26-MAR-2024 (400 MG), 05-APR-2024 (400 MG)
     Route: 048
     Dates: start: 20240220, end: 20240304
  2. VENETOCLAX [Suspect]
     Active Substance: VENETOCLAX
     Indication: Chronic lymphocytic leukaemia
     Dosage: LAST ADMIN DATE: MAR 2024
     Route: 048
     Dates: start: 20240306
  3. VENETOCLAX [Suspect]
     Active Substance: VENETOCLAX
     Indication: Chronic lymphocytic leukaemia
     Dosage: LAST ADMIN DATE: 2024
     Route: 048
     Dates: start: 20240326
  4. VENETOCLAX [Suspect]
     Active Substance: VENETOCLAX
     Indication: Chronic lymphocytic leukaemia
     Dosage: LAST ADMIN DATE: 2024
     Route: 048
     Dates: start: 20240405
  5. RASBURICASE [Concomitant]
     Active Substance: RASBURICASE
     Indication: Product used for unknown indication
     Dates: start: 20240220
  6. PEMBROLIZUMAB [Suspect]
     Active Substance: PEMBROLIZUMAB
     Indication: Chronic lymphocytic leukaemia
     Dosage: ON 01-APR-2024 HE RECEIVED LAST DOSE OF PIRTOBRUTINIB PRIOR TO INFRAVESICAL OBSTRUCTION (BLADDER ...
     Route: 065
     Dates: end: 20240401

REACTIONS (2)
  - Tumour lysis syndrome [Recovered/Resolved]
  - Bladder outlet obstruction [Recovered/Resolved]

NARRATIVE: CASE EVENT DATE: 20240305
